FAERS Safety Report 8197808-6 (Version None)
Quarter: 2012Q1

REPORT INFORMATION
  Report Type: 
  Country: None (occurrence: None)
  Receive Date: 20120309
  Receipt Date: 20120302
  Transmission Date: 20120608
  Serious: Yes (Hospitalization)
  Sender: FDA-Public Use
  Company Number: US-BAYER-2011-074164

PATIENT
  Age: 41 Year
  Sex: Female
  Weight: 54.422 kg

DRUGS (3)
  1. YASMIN [Suspect]
     Indication: CONTRACEPTION
     Dosage: UNK
     Dates: start: 20080301, end: 20090101
  2. YASMIN [Suspect]
     Indication: PREMENSTRUAL SYNDROME
  3. SYNTHROID [Concomitant]
     Dosage: UNK
     Dates: start: 20050101

REACTIONS (9)
  - INJURY [None]
  - ANXIETY [None]
  - PAIN [None]
  - ANHEDONIA [None]
  - GENERAL PHYSICAL HEALTH DETERIORATION [None]
  - GALLBLADDER DISORDER [None]
  - CHOLECYSTITIS [None]
  - EMOTIONAL DISTRESS [None]
  - DYSPEPSIA [None]
